FAERS Safety Report 8840385 (Version 4)
Quarter: 2013Q1

REPORT INFORMATION
  Report Type: Spontaneous
  Country: US (occurrence: US)
  Receive Date: 20121015
  Receipt Date: 20130304
  Transmission Date: 20140127
  Serious: Yes (Hospitalization, Other)
  Sender: FDA-Public Use
  Company Number: US-009507513-1111USA00643

PATIENT
  Sex: Female

DRUGS (3)
  1. FOSAMAX [Suspect]
     Indication: OSTEOPOROSIS
     Dosage: 70 MG, QW
     Route: 048
     Dates: start: 200302, end: 201102
  2. CALCIUM (UNSPECIFIED) [Concomitant]
     Indication: OSTEOPOROSIS
     Dosage: 1500 MG, QD
  3. VITAMIN D (UNSPECIFIED) [Concomitant]
     Indication: OSTEOPOROSIS
     Dosage: 1000 IU, UNK

REACTIONS (11)
  - Femur fracture [Unknown]
  - Femur fracture [Unknown]
  - Urinary tract disorder [Unknown]
  - Intramedullary rod insertion [Unknown]
  - Intramedullary rod insertion [Unknown]
  - Hospitalisation [Unknown]
  - Fall [Unknown]
  - Ligament rupture [Unknown]
  - Ankle fracture [Not Recovered/Not Resolved]
  - Open reduction of fracture [Unknown]
  - Ligament operation [Unknown]
